FAERS Safety Report 7141568-4 (Version None)
Quarter: 2010Q4

REPORT INFORMATION
  Report Type: 
  Country: None (occurrence: None)
  Receive Date: 20101207
  Receipt Date: 20101201
  Transmission Date: 20110411
  Serious: Yes (Hospitalization)
  Sender: FDA-Public Use
  Company Number: PHHY2010JP81943

PATIENT
  Age: 81 Year
  Sex: Male

DRUGS (2)
  1. LAMISIL [Suspect]
     Dosage: UNK
     Route: 048
     Dates: start: 20091201, end: 20100601
  2. LAMISIL [Suspect]
     Dosage: UNK
     Route: 048
     Dates: start: 20100901

REACTIONS (1)
  - PULMONARY ALVEOLAR HAEMORRHAGE [None]
